FAERS Safety Report 13773079 (Version 1)
Quarter: 2017Q3

REPORT INFORMATION
  Report Type: Spontaneous
  Country: FR (occurrence: FR)
  Receive Date: 20170720
  Receipt Date: 20170720
  Transmission Date: 20171127
  Serious: Yes (Hospitalization, Disabling, Congenital Anomaly, Other)
  Sender: FDA-Public Use
  Company Number: FR-PFIZER INC-2017306562

PATIENT
  Age: 1 Day
  Sex: Male
  Weight: 3.38 kg

DRUGS (2)
  1. EFFEXOR LP [Suspect]
     Active Substance: VENLAFAXINE HYDROCHLORIDE
     Indication: DEPRESSION
     Dosage: UNK
     Route: 064
  2. LAMOTRIGINE. [Suspect]
     Active Substance: LAMOTRIGINE
     Indication: DEPRESSION
     Dosage: 25 MG, 1X/DAY
     Route: 064
     Dates: start: 20161018, end: 20170620

REACTIONS (2)
  - Exposure during pregnancy [Not Recovered/Not Resolved]
  - Congenital pulmonary valve disorder [Not Recovered/Not Resolved]

NARRATIVE: CASE EVENT DATE: 20170620
